FAERS Safety Report 11871131 (Version 1)
Quarter: 2015Q4

REPORT INFORMATION
  Report Type: Spontaneous
  Country: SE (occurrence: SE)
  Receive Date: 20151228
  Receipt Date: 20151228
  Transmission Date: 20160305
  Serious: Yes (Hospitalization)
  Sender: FDA-Public Use
  Company Number: SE-PFIZER INC-2015455028

PATIENT
  Age: 82 Year
  Sex: Male

DRUGS (2)
  1. RIMACTANE [Concomitant]
     Active Substance: RIFAMPIN
     Dosage: UNK
     Dates: start: 20150427
  2. DALACIN [Suspect]
     Active Substance: CLINDAMYCIN\CLINDAMYCIN PHOSPHATE
     Indication: DEVICE RELATED INFECTION
     Route: 048
     Dates: start: 20150427

REACTIONS (2)
  - Drug eruption [Recovered/Resolved]
  - Pyrexia [Unknown]

NARRATIVE: CASE EVENT DATE: 2015
